FAERS Safety Report 25060673 (Version 1)
Quarter: 2025Q1

REPORT INFORMATION
  Report Type: Spontaneous
  Country: US (occurrence: US)
  Receive Date: 20250310
  Receipt Date: 20250310
  Transmission Date: 20250409
  Serious: Yes (Other)
  Sender: DR REDDYS
  Company Number: US-DRL-USA-USA/2025/03/003319

PATIENT
  Age: 78 Year
  Sex: Male

DRUGS (2)
  1. BORTEZOMIB [Suspect]
     Active Substance: BORTEZOMIB
     Indication: Warm autoimmune haemolytic anaemia
  2. DARATUMUMAB [Suspect]
     Active Substance: DARATUMUMAB
     Indication: Warm autoimmune haemolytic anaemia

REACTIONS (2)
  - Drug ineffective for unapproved indication [Unknown]
  - Nausea [Unknown]
